FAERS Safety Report 4432482-3 (Version None)
Quarter: 2004Q3

REPORT INFORMATION
  Report Type: 
  Country: None (occurrence: None)
  Receive Date: 20040825
  Receipt Date: 20040616
  Transmission Date: 20050211
  Serious: Yes (Other)
  Sender: FDA-Public Use
  Company Number: PHNU2004DE02147

PATIENT
  Age: 32 Year
  Sex: Male

DRUGS (1)
  1. CLOZARIL [Suspect]
     Indication: SCHIZOPHRENIA
     Dosage: 450 MG/DAY
     Route: 048

REACTIONS (3)
  - BLOOD THYROID STIMULATING HORMONE DECREASED [None]
  - HYPERTHYROIDISM [None]
  - THYROXINE INCREASED [None]
